FAERS Safety Report 21569295 (Version 1)
Quarter: 2022Q4

REPORT INFORMATION
  Report Type: Spontaneous
  Country: US (occurrence: US)
  Receive Date: 20221109
  Receipt Date: 20221109
  Transmission Date: 20230113
  Serious: No
  Sender: FDA-Public Use
  Company Number: US-SA-SAC20221102002047

PATIENT
  Age: 50 Year
  Sex: Male

DRUGS (1)
  1. DUPIXENT [Suspect]
     Active Substance: DUPILUMAB
     Dosage: 300MG
     Route: 058
     Dates: start: 202207

REACTIONS (5)
  - Chest discomfort [Unknown]
  - Feeling hot [Unknown]
  - Flushing [Unknown]
  - Erythema [Unknown]
  - Dizziness [Unknown]

NARRATIVE: CASE EVENT DATE: 20221031
